FAERS Safety Report 5777531-5 (Version None)
Quarter: 2008Q2

REPORT INFORMATION
  Report Type: 
  Country: None (occurrence: None)
  Receive Date: 20080618
  Receipt Date: 20080613
  Transmission Date: 20081010
  Serious: Yes (Life-Threatening, Other)
  Sender: FDA-Public Use
  Company Number: GB-WYE-G01387208

PATIENT
  Sex: Female

DRUGS (5)
  1. TAZOCIN [Suspect]
     Indication: BRONCHIECTASIS
     Dosage: 4.5G, FREQUENCY UNKNOWN
     Route: 042
     Dates: start: 20080328, end: 20080328
  2. SEREVENT [Concomitant]
     Indication: BRONCHIECTASIS
     Dosage: UNKNOWN
     Route: 055
     Dates: start: 20060101
  3. GLUCOSAMINE [Concomitant]
     Indication: ARTHRALGIA
     Dosage: 1 DOSE FORM DAILY
     Route: 048
  4. ASPIRIN [Concomitant]
     Dosage: 75MG, FREQUENCY UNKNOWN
     Route: 048
     Dates: start: 20060101
  5. DUOVENT [Concomitant]
     Indication: BRONCHIECTASIS
     Dosage: UNKNOWN
     Route: 055
     Dates: start: 20060101

REACTIONS (10)
  - ANAPHYLACTIC REACTION [None]
  - DYSPNOEA [None]
  - ERYTHEMA [None]
  - LOSS OF CONSCIOUSNESS [None]
  - MALAISE [None]
  - PHARYNGEAL OEDEMA [None]
  - PRURITUS [None]
  - SWELLING [None]
  - SWELLING FACE [None]
  - SYNCOPE [None]
